FAERS Safety Report 6999870-2 (Version None)
Quarter: 2010Q3

REPORT INFORMATION
  Report Type: 
  Country: None (occurrence: None)
  Receive Date: 20100920
  Receipt Date: 20070618
  Transmission Date: 20110219
  Serious: Yes (Hospitalization, Other)
  Sender: FDA-Public Use
  Company Number: US-ASTRAZENECA-2006UW23232

PATIENT
  Age: 19496 Day
  Sex: Male
  Weight: 108.9 kg

DRUGS (6)
  1. SEROQUEL [Suspect]
     Indication: DEPRESSION
     Dosage: TOTAL DAILY DOSE 300 MG
     Route: 048
     Dates: start: 20030101
  2. SEROQUEL [Suspect]
     Dosage: 25-900 MG
     Route: 048
     Dates: start: 20040729
  3. XANAX [Concomitant]
     Indication: DEPRESSION
     Dates: start: 20021216
  4. LITHIUM [Concomitant]
     Indication: BIPOLAR DISORDER
     Dosage: 600-900 MG
     Dates: start: 19900101
  5. DEPAKOTE [Concomitant]
     Dosage: 500-2000 MG
     Dates: start: 20021216
  6. PRILOSEC [Concomitant]
     Indication: HIATUS HERNIA
     Route: 048
     Dates: start: 20021216

REACTIONS (4)
  - BLOOD CHOLESTEROL INCREASED [None]
  - DIABETIC COMA [None]
  - DIABETIC KETOACIDOSIS [None]
  - TYPE 2 DIABETES MELLITUS [None]
